FAERS Safety Report 10042806 (Version 1)
Quarter: 2014Q1

REPORT INFORMATION
  Report Type: Spontaneous
  Country: FR (occurrence: FR)
  Receive Date: 20140327
  Receipt Date: 20140327
  Transmission Date: 20141002
  Serious: Yes (Hospitalization)
  Sender: FDA-Public Use
  Company Number: PHHY2014FR035361

PATIENT
  Age: 55 Year
  Sex: Female

DRUGS (7)
  1. GENTAMICIN SANDOZ [Suspect]
     Route: 042
     Dates: start: 20061011, end: 20061011
  2. VANCOMYCINE ABBOTT [Suspect]
     Route: 042
     Dates: start: 20061011, end: 20061011
  3. DIPRIVAN [Suspect]
     Route: 042
     Dates: start: 20061011, end: 20061011
  4. FENOFIBRATE [Concomitant]
  5. ATARAX                                  /CAN/ [Concomitant]
     Dates: start: 20061011
  6. RAPIFEN [Concomitant]
     Route: 065
     Dates: start: 20061011
  7. ETOMIDATE [Concomitant]
     Route: 065
     Dates: start: 20061011

REACTIONS (1)
  - Anaphylactic shock [Recovered/Resolved]
